FAERS Safety Report 23769804 (Version 7)
Quarter: 2025Q2

REPORT INFORMATION
  Report Type: Spontaneous
  Country: US (occurrence: US)
  Receive Date: 20240422
  Receipt Date: 20250613
  Transmission Date: 20250717
  Serious: Yes (Hospitalization, Other)
  Sender: PFIZER
  Company Number: US-PFIZER INC-PV202400051838

PATIENT
  Age: 84 Year
  Sex: Male
  Weight: 97.052 kg

DRUGS (3)
  1. BOSULIF [Suspect]
     Active Substance: BOSUTINIB MONOHYDRATE
     Indication: Hepatic cancer
     Dosage: 100 MG, DAILY
     Route: 048
  2. BOSULIF [Suspect]
     Active Substance: BOSUTINIB MONOHYDRATE
     Dosage: 2 DF, DAILY
     Route: 048
  3. BOSULIF [Suspect]
     Active Substance: BOSUTINIB MONOHYDRATE
     Dosage: 1 TABLET ORALLY EVERY DAY. SWALLOW WHOLE; DO NOT BREAK TABLET. TAKE W/ FOOD.
     Route: 048

REACTIONS (3)
  - Illness [Unknown]
  - Dementia Alzheimer^s type [Unknown]
  - Off label use [Unknown]
